FAERS Safety Report 5762365-8 (Version None)
Quarter: 2008Q2

REPORT INFORMATION
  Report Type: 
  Country: None (occurrence: None)
  Receive Date: 20080609
  Receipt Date: 20080529
  Transmission Date: 20081010
  Serious: Yes (Disabling, Other)
  Sender: FDA-Public Use
  Company Number: US-ROCHE-522543

PATIENT
  Sex: Male
  Weight: 49.9 kg

DRUGS (4)
  1. ACCUTANE [Suspect]
     Indication: ACNE
     Dosage: DOSAGE RECEIVED FOR 2 WEEKS AND STRENGTH: 20 MG
     Route: 065
     Dates: start: 20050621
  2. ACCUTANE [Suspect]
     Dosage: DOSAGE RECEIVED FOR 2 WEEKS, STRENGTH: 20MG
     Route: 065
     Dates: end: 20050722
  3. ACCUTANE [Suspect]
     Dosage: STRENGTH: 40MG
     Route: 065
     Dates: start: 20050723, end: 20050822
  4. ACCUTANE [Suspect]
     Dosage: STRENGTH: 40 MG; 40MG ONE ALTERNATING DAYS WITH TWO DAILY
     Route: 065
     Dates: start: 20050823, end: 20051215

REACTIONS (6)
  - ALOPECIA [None]
  - CLAVICLE FRACTURE [None]
  - FEMUR FRACTURE [None]
  - FOREARM FRACTURE [None]
  - LIGAMENT RUPTURE [None]
  - LUMBAR VERTEBRAL FRACTURE [None]
